FAERS Safety Report 7426862-1 (Version None)
Quarter: 2011Q2

REPORT INFORMATION
  Report Type: 
  Country: None (occurrence: None)
  Receive Date: 20110413
  Receipt Date: 20110318
  Transmission Date: 20111010
  Serious: Yes (Other)
  Sender: FDA-Public Use
  Company Number: DQ-50-0728

PATIENT
  Age: 22 Month
  Weight: 13 kg

DRUGS (1)
  1. ALBUTEROL SULFATE [Suspect]
     Dosage: INHALATION VIAL NEBULIZER
     Route: 055
     Dates: start: 20110301

REACTIONS (2)
  - CARDIAC MURMUR [None]
  - BRADYCARDIA [None]
